FAERS Safety Report 21036837 (Version 5)
Quarter: 2025Q2

REPORT INFORMATION
  Report Type: Report from Study
  Country: US (occurrence: US)
  Receive Date: 20220702
  Receipt Date: 20250515
  Transmission Date: 20250717
  Serious: Yes (Other)
  Sender: TAKEDA
  Company Number: US-PAREXEL-2021-KAM-US003350

PATIENT
  Sex: Female
  Weight: 74.83 kg

DRUGS (25)
  1. GLASSIA [Suspect]
     Active Substance: .ALPHA.1-PROTEINASE INHIBITOR HUMAN
     Indication: Alpha-1 antitrypsin deficiency
     Dosage: 60 MILLIGRAM/KILOGRAM, 1/WEEK
     Dates: start: 20190921
  2. GLASSIA [Suspect]
     Active Substance: .ALPHA.1-PROTEINASE INHIBITOR HUMAN
  3. ARALAST NP [Suspect]
     Active Substance: .ALPHA.1-PROTEINASE INHIBITOR HUMAN
     Indication: Alpha-1 antitrypsin deficiency
  4. ARALAST NP [Suspect]
     Active Substance: .ALPHA.1-PROTEINASE INHIBITOR HUMAN
  5. DICLOFENAC [Concomitant]
     Active Substance: DICLOFENAC
  6. DIPHENHYDRAMINE [Concomitant]
     Active Substance: DIPHENHYDRAMINE
  7. LIDOCAINE [Concomitant]
     Active Substance: LIDOCAINE
  8. SODIUM CHLORIDE [Concomitant]
     Active Substance: SODIUM CHLORIDE
  9. EPINEPHRINE [Concomitant]
     Active Substance: EPINEPHRINE
  10. MONTELUKAST [Concomitant]
     Active Substance: MONTELUKAST
  11. ASPIRIN [Concomitant]
     Active Substance: ASPIRIN
  12. VENTOLIN [Concomitant]
     Active Substance: ALBUTEROL SULFATE
  13. TRELEGY ELLIPTA [Concomitant]
     Active Substance: FLUTICASONE FUROATE\UMECLIDINIUM BROMIDE\VILANTEROL TRIFENATATE
  14. LINZESS [Concomitant]
     Active Substance: LINACLOTIDE
  15. CYCLOBENZAPRINE [Concomitant]
     Active Substance: CYCLOBENZAPRINE
  16. CALCIUM [Concomitant]
     Active Substance: CALCIUM
  17. RANITIDINE [Concomitant]
     Active Substance: RANITIDINE
  18. GABAPENTIN [Concomitant]
     Active Substance: GABAPENTIN
  19. NYSTATIN [Concomitant]
     Active Substance: NYSTATIN
  20. VITAMIN D [Concomitant]
     Active Substance: VITAMIN D NOS
  21. BUPROPION [Concomitant]
     Active Substance: BUPROPION
  22. PRAVASTATIN [Concomitant]
     Active Substance: PRAVASTATIN
  23. TRAZODONE [Concomitant]
     Active Substance: TRAZODONE HYDROCHLORIDE
  24. MELOXICAM [Concomitant]
     Active Substance: MELOXICAM
  25. TRINTELLIX [Concomitant]
     Active Substance: VORTIOXETINE HYDROBROMIDE

REACTIONS (5)
  - COVID-19 [Recovering/Resolving]
  - Bronchitis [Recovering/Resolving]
  - Infusion site erythema [Not Recovered/Not Resolved]
  - Localised infection [Unknown]
  - Dyspnoea [Unknown]
